FAERS Safety Report 15387242 (Version 1)
Quarter: 2018Q3

REPORT INFORMATION
  Report Type: Spontaneous
  Country: US (occurrence: US)
  Receive Date: 20180914
  Receipt Date: 20180914
  Transmission Date: 20181010
  Serious: No
  Sender: FDA-Public Use
  Company Number: US-SA-2018SA254417

PATIENT
  Sex: Male

DRUGS (2)
  1. EXLAX [PHENOLPHTHALEIN] [Concomitant]
     Indication: CONSTIPATION
     Dosage: UNK
  2. DULCOLAX (BISACODYL) [Suspect]
     Active Substance: BISACODYL

REACTIONS (1)
  - Frequent bowel movements [Unknown]
